FAERS Safety Report 25177637 (Version 1)
Quarter: 2025Q2

REPORT INFORMATION
  Report Type: Spontaneous
  Country: US (occurrence: US)
  Receive Date: 20250409
  Receipt Date: 20250409
  Transmission Date: 20250717
  Serious: No
  Sender: TAKEDA
  Company Number: US-TAKEDA-2025TUS034505

PATIENT
  Age: 65 Year
  Sex: Female
  Weight: 113 kg

DRUGS (2)
  1. INTUNIV [Suspect]
     Active Substance: GUANFACINE HYDROCHLORIDE
     Indication: Hypertension
     Dosage: 2 MILLIGRAM, QD
  2. GUANFACINE HYDROCHLORIDE [Suspect]
     Active Substance: GUANFACINE HYDROCHLORIDE
     Indication: Product used for unknown indication

REACTIONS (2)
  - No adverse event [Unknown]
  - Product use in unapproved indication [Unknown]
